FAERS Safety Report 10922500 (Version 2)
Quarter: 2015Q1

REPORT INFORMATION
  Report Type: Spontaneous
  Country: US (occurrence: US)
  Receive Date: 20150317
  Receipt Date: 20150330
  Transmission Date: 20150721
  Serious: Yes (Other)
  Sender: FDA-Public Use
  Company Number: US-SHIRE-US201502053

PATIENT
  Sex: Male
  Weight: 83.9 kg

DRUGS (1)
  1. ADDERALL XR [Suspect]
     Active Substance: AMPHETAMINE ASPARTATE\AMPHETAMINE SULFATE\DEXTROAMPHETAMINE SACCHARATE\DEXTROAMPHETAMINE SULFATE
     Indication: ATTENTION DEFICIT/HYPERACTIVITY DISORDER
     Dosage: 30 MG, 2X/DAY:BID
     Route: 048
     Dates: start: 1992, end: 2002

REACTIONS (16)
  - Loss of consciousness [Recovered/Resolved]
  - Alport^s syndrome [Not Recovered/Not Resolved]
  - Urine abnormality [Unknown]
  - Adverse drug reaction [Not Recovered/Not Resolved]
  - Inappropriate schedule of drug administration [Recovered/Resolved]
  - Atrioventricular block complete [Not Recovered/Not Resolved]
  - Arrhythmia [Unknown]
  - Prescribed overdose [Recovered/Resolved]
  - Renal disorder [Not Recovered/Not Resolved]
  - Flank pain [Not Recovered/Not Resolved]
  - Syncope [Unknown]
  - Blood urine present [Not Recovered/Not Resolved]
  - Urine calcium increased [Not Recovered/Not Resolved]
  - Chest pain [Unknown]
  - Vision blurred [Unknown]
  - Adverse event [Not Recovered/Not Resolved]

NARRATIVE: CASE EVENT DATE: 1992
